FAERS Safety Report 6671112-7 (Version None)
Quarter: 2010Q2

REPORT INFORMATION
  Report Type: 
  Country: None (occurrence: None)
  Receive Date: 20100407
  Receipt Date: 20100330
  Transmission Date: 20101027
  Serious: Yes (Hospitalization)
  Sender: FDA-Public Use
  Company Number: PHHY2009BR48726

PATIENT
  Sex: Female

DRUGS (4)
  1. FORASEQ [Suspect]
     Dosage: UNK
  2. FORADIL [Suspect]
     Indication: ASTHMA
     Dosage: UNK
  3. FORADIL [Suspect]
     Indication: ALLERGIC BRONCHITIS
  4. AEROLIN ^3M^ [Concomitant]
     Indication: BRONCHITIS
     Dosage: UNK

REACTIONS (7)
  - BLOOD CHOLESTEROL INCREASED [None]
  - BRONCHOPNEUMONIA [None]
  - COUGH [None]
  - DYSPNOEA [None]
  - HYPERTENSION [None]
  - SYNCOPE [None]
  - TREATMENT NONCOMPLIANCE [None]
